FAERS Safety Report 4313347-4 (Version None)
Quarter: 2004Q1

REPORT INFORMATION
  Report Type: 
  Country: None (occurrence: None)
  Receive Date: 20040304
  Receipt Date: 20040217
  Transmission Date: 20041129
  Serious: Yes (Other)
  Sender: FDA-Public Use
  Company Number: DSA_23690_2003

PATIENT
  Sex: Female

DRUGS (1)
  1. ENALAPRIL MALEATE AND HYDROCHLOROTHIAZIDE [Suspect]
     Indication: HYPERTENSION
     Dosage: 1 TAB QD PO
     Route: 048

REACTIONS (3)
  - DISCOMFORT [None]
  - UTERINE PROLAPSE [None]
  - VAGINAL DISCHARGE [None]
